FAERS Safety Report 10040883 (Version 2)
Quarter: 2014Q2

REPORT INFORMATION
  Report Type: Spontaneous
  Country: US (occurrence: US)
  Receive Date: 20140327
  Receipt Date: 20140520
  Transmission Date: 20141212
  Serious: No
  Sender: FDA-Public Use
  Company Number: US-PFIZER INC-2014083585

PATIENT
  Age: 64 Year
  Sex: Female
  Weight: 68.93 kg

DRUGS (2)
  1. PROTONIX [Suspect]
     Indication: GASTROOESOPHAGEAL REFLUX DISEASE
     Dosage: 40 MG, 1X/DAY
  2. PROTONIX [Suspect]
     Indication: ERUCTATION

REACTIONS (1)
  - Drug ineffective [Not Recovered/Not Resolved]
